FAERS Safety Report 11109696 (Version 1)
Quarter: 2015Q2

REPORT INFORMATION
  Report Type: Spontaneous
  Country: US (occurrence: None)
  Receive Date: 20150512
  Receipt Date: 20150512
  Transmission Date: 20150821
  Serious: No
  Sender: FDA-Public Use
  Company Number: None

PATIENT
  Age: 29 Year
  Sex: Female

DRUGS (1)
  1. ENOXAPARIN 40MG/0.4 ML WATSON PHARMA [Suspect]
     Active Substance: ENOXAPARIN
     Dosage: STRENGTH: 40MG?

REACTIONS (3)
  - Device defective [None]
  - Syringe issue [None]
  - Pain [None]

NARRATIVE: CASE EVENT DATE: 20150429
